FAERS Safety Report 4319085-6 (Version None)
Quarter: 2004Q1

REPORT INFORMATION
  Report Type: 
  Country: None (occurrence: None)
  Receive Date: 20040318
  Receipt Date: 20040318
  Transmission Date: 20041129
  Serious: Yes (Other)
  Sender: FDA-Public Use
  Company Number: None

PATIENT
  Sex: Male
  Weight: 63.5036 kg

DRUGS (5)
  1. GATIFLOXACIN [Suspect]
     Indication: URINARY TRACT INFECTION
     Dosage: 200 MG EVERY DAY ORAL
     Route: 048
     Dates: start: 20040116, end: 20040130
  2. SENNA [Concomitant]
  3. OMEPRAZOLE [Concomitant]
  4. DOCUSATE [Concomitant]
  5. LISINOPRIL [Concomitant]

REACTIONS (2)
  - PRURITUS [None]
  - RASH [None]
